FAERS Safety Report 7011288-5 (Version None)
Quarter: 2010Q3

REPORT INFORMATION
  Report Type: 
  Country: None (occurrence: None)
  Receive Date: 20100923
  Receipt Date: 20081216
  Transmission Date: 20110219
  Serious: No
  Sender: FDA-Public Use
  Company Number: US-WYE-H07318508

PATIENT
  Age: 73 Year
  Sex: Male

DRUGS (9)
  1. RAPAMUNE [Suspect]
     Indication: PROPHYLAXIS AGAINST TRANSPLANT REJECTION
     Route: 048
     Dates: start: 20081201, end: 20081203
  2. RAPAMUNE [Suspect]
     Route: 048
     Dates: start: 20081204
  3. SYNTHROID [Concomitant]
  4. ARAVA [Concomitant]
  5. PRAVACHOL [Concomitant]
  6. ENALAPRIL [Concomitant]
  7. CENTRUM SILVER [Concomitant]
  8. ZANTAC [Concomitant]
  9. PREDNISONE TAB [Concomitant]

REACTIONS (4)
  - DEPRESSION [None]
  - IRRITABILITY [None]
  - LIBIDO DECREASED [None]
  - LISTLESS [None]
